FAERS Safety Report 20070845 (Version 1)
Quarter: 2021Q4

REPORT INFORMATION
  Report Type: Spontaneous
  Country: US (occurrence: US)
  Receive Date: 20211115
  Receipt Date: 20211115
  Transmission Date: 20220303
  Serious: Yes (Disabling)
  Sender: FDA-Public Use
  Company Number: US-ELI_LILLY_AND_COMPANY-US202111005064

PATIENT
  Sex: Female

DRUGS (1)
  1. HUMALOG [Suspect]
     Active Substance: INSULIN LISPRO
     Indication: Product used for unknown indication
     Dosage: 350 U, DAILY
     Route: 065
     Dates: start: 2018

REACTIONS (3)
  - Intervertebral disc protrusion [Unknown]
  - Neuropathy peripheral [Unknown]
  - Mental disorder [Unknown]
